FAERS Safety Report 8412125-4 (Version None)
Quarter: 2012Q2

REPORT INFORMATION
  Report Type: 
  Country: None (occurrence: None)
  Receive Date: 20120605
  Receipt Date: 20120507
  Transmission Date: 20120825
  Serious: No
  Sender: FDA-Public Use
  Company Number: US-AMGEN-USASP2012026387

PATIENT
  Sex: Male

DRUGS (1)
  1. ENBREL [Suspect]
     Indication: PSORIATIC ARTHROPATHY
     Dosage: 50 MG, 2 TIMES/WK
     Dates: start: 20081101

REACTIONS (5)
  - PROSTATOMEGALY [None]
  - PSORIATIC ARTHROPATHY [None]
  - JOINT CREPITATION [None]
  - PSORIASIS [None]
  - MENISCUS LESION [None]
